FAERS Safety Report 19405425 (Version 5)
Quarter: 2022Q2

REPORT INFORMATION
  Report Type: Spontaneous
  Country: US (occurrence: US)
  Receive Date: 20210611
  Receipt Date: 20220505
  Transmission Date: 20220720
  Serious: Yes (Other)
  Sender: FDA-Public Use
  Company Number: US-PFIZER INC-2021546889

PATIENT
  Age: 28 Year
  Sex: Female

DRUGS (2)
  1. XELJANZ XR [Suspect]
     Active Substance: TOFACITINIB CITRATE
     Indication: Rheumatoid arthritis
     Dosage: 11 MG, 1X/DAY
     Route: 048
     Dates: start: 202103, end: 20210821
  2. XELJANZ XR [Suspect]
     Active Substance: TOFACITINIB CITRATE
     Dosage: 11 MG, 1X/DAY
     Route: 048
     Dates: start: 20210920

REACTIONS (7)
  - Thyroid mass [Unknown]
  - Hypertension [Unknown]
  - Thyroid cancer [Unknown]
  - Drug ineffective [Unknown]
  - Product dose omission issue [Unknown]
  - Blood cholesterol increased [Unknown]
  - Condition aggravated [Recovering/Resolving]
